FAERS Safety Report 7234084-2 (Version None)
Quarter: 2010Q4

REPORT INFORMATION
  Report Type: 
  Country: None (occurrence: None)
  Receive Date: 20101130
  Receipt Date: 20100309
  Transmission Date: 20110411
  Serious: Yes (Hospitalization)
  Sender: FDA-Public Use
  Company Number: 2009-189352-NL

PATIENT
  Age: 35 Year
  Sex: Female
  Weight: 77.1 kg

DRUGS (2)
  1. NUVARING [Suspect]
     Indication: PRODUCT USED FOR UNKNOWN INDICATION
     Dates: start: 20070101
  2. FLUOXETINE [Concomitant]

REACTIONS (6)
  - BRONCHITIS [None]
  - COAGULOPATHY [None]
  - PORTAL VEIN THROMBOSIS [None]
  - SINUSITIS [None]
  - UTERINE LEIOMYOMA [None]
  - UTERINE POLYP [None]
